FAERS Safety Report 24353987 (Version 1)
Quarter: 2024Q3

REPORT INFORMATION
  Report Type: Spontaneous
  Country: US (occurrence: US)
  Receive Date: 20240923
  Receipt Date: 20240923
  Transmission Date: 20241017
  Serious: No
  Sender: JOHNSON AND JOHNSON
  Company Number: US-JNJFOC-20240933103

PATIENT
  Age: 11 Year
  Sex: Female
  Weight: 29.51 kg

DRUGS (1)
  1. STELARA [Suspect]
     Active Substance: USTEKINUMAB
     Indication: Psoriasis
     Dosage: 0.3 (UNITS UNSPECIFIED)
     Route: 058
     Dates: start: 20240706

REACTIONS (2)
  - Product storage error [Unknown]
  - Psoriasis [Unknown]
